FAERS Safety Report 7705030-X (Version None)
Quarter: 2011Q3

REPORT INFORMATION
  Report Type: 
  Country: None (occurrence: None)
  Receive Date: 20110823
  Receipt Date: 20110803
  Transmission Date: 20111222
  Serious: Yes (Death, Other)
  Sender: FDA-Public Use
  Company Number: JP-PFIZER INC-2011037577

PATIENT
  Age: 73 Year
  Sex: Female
  Weight: 30.5 kg

DRUGS (10)
  1. ARIMIDEX [Concomitant]
     Indication: BREAST CANCER
     Dosage: UNK
     Dates: end: 20100602
  2. CELECOXIB [Suspect]
     Indication: RHEUMATOID ARTHRITIS
     Dosage: 400 MG  DAILY
     Route: 048
     Dates: start: 20080410
  3. PREDNISOLONE [Concomitant]
     Indication: RHEUMATOID ARTHRITIS
     Dosage: UNK
     Dates: start: 20040804, end: 20100602
  4. ALENDRONATE SODIUM [Concomitant]
     Indication: OSTEOPOROSIS
     Dosage: UNK
     Dates: start: 20070510, end: 20100602
  5. RIMATIL [Concomitant]
     Indication: RHEUMATOID ARTHRITIS
     Dosage: UNK
     Dates: start: 19980110, end: 20100602
  6. DICLOFENAC SODIUM [Concomitant]
     Dosage: UNK
     Route: 054
     Dates: start: 20080410, end: 20100404
  7. CALCIUM LACTATE [Concomitant]
     Indication: OSTEOPOROSIS
     Dosage: UNK
     Dates: start: 20070510, end: 20100602
  8. D ALFA [Concomitant]
     Indication: OSTEOPOROSIS
     Dosage: UNK
     Dates: start: 20070510, end: 20100602
  9. AMLODIPINE [Concomitant]
     Indication: HYPERTENSION
     Dosage: UNK
     Dates: start: 20061125, end: 20100602
  10. OPALMON [Concomitant]
     Indication: LUMBAR SPINAL STENOSIS
     Dosage: UNK
     Dates: start: 20090416, end: 20100602

REACTIONS (3)
  - RESPIRATORY FAILURE [None]
  - LUMBAR SPINAL STENOSIS [None]
  - PNEUMONIA [None]
